FAERS Safety Report 24748439 (Version 1)
Quarter: 2024Q4

REPORT INFORMATION
  Report Type: Spontaneous
  Country: FR (occurrence: FR)
  Receive Date: 20241218
  Receipt Date: 20241218
  Transmission Date: 20250115
  Serious: Yes (Other)
  Sender: BAXTER
  Company Number: None

PATIENT
  Age: 67 Year
  Sex: Male
  Weight: 66 kg

DRUGS (5)
  1. PROPOFOL [Suspect]
     Active Substance: PROPOFOL
     Indication: Anaesthesia
     Route: 041
     Dates: start: 20240923, end: 20240923
  2. METHYLPREDNISOLONE [Suspect]
     Active Substance: METHYLPREDNISOLONE
     Indication: Renal transplant
     Dosage: 125 MG, ONCE DAILY (METHYLPREDNISOLONE VIATRIS 120 MG, POWDER FOR SOLUTION FOR INJECTION (IM-IV))
     Route: 041
     Dates: start: 20240923, end: 20240923
  3. SUFENTANIL CITRATE [Suspect]
     Active Substance: SUFENTANIL CITRATE
     Indication: Anaesthesia
     Dosage: 40 MG, 1 TOTAL
     Route: 041
     Dates: start: 20240923, end: 20240923
  4. OXYCODONE HYDROCHLORIDE [Suspect]
     Active Substance: OXYCODONE HYDROCHLORIDE
     Indication: Analgesic intervention supportive therapy
     Dosage: 5 MG, 1 TOTAL OXYNORM 10 MG/ML, SOLUTION INJECTABLE
     Route: 041
     Dates: start: 20240823, end: 20240923
  5. CEFOXITIN SODIUM [Suspect]
     Active Substance: CEFOXITIN SODIUM
     Indication: Antibiotic prophylaxis
     Dosage: 2 G, 1 TOTAL
     Route: 041
     Dates: start: 20240923, end: 20240923

REACTIONS (1)
  - Hiccups [Recovered/Resolved]

NARRATIVE: CASE EVENT DATE: 20240924
